FAERS Safety Report 9348163 (Version 1)
Quarter: 2013Q2

REPORT INFORMATION
  Report Type: Spontaneous
  Country: US (occurrence: US)
  Receive Date: 20130614
  Receipt Date: 20130614
  Transmission Date: 20140414
  Serious: Yes (Other)
  Sender: FDA-Public Use
  Company Number: US-JNJFOC-20130601005

PATIENT
  Sex: 0

DRUGS (5)
  1. HALOPERIDOL [Suspect]
     Indication: BIPOLAR DISORDER
     Route: 065
  2. HALOPERIDOL [Suspect]
     Indication: AGITATION
     Route: 065
  3. LORAZEPAM [Suspect]
     Indication: BIPOLAR DISORDER
     Route: 065
  4. LORAZEPAM [Suspect]
     Indication: AGITATION
     Route: 065
  5. KAVA [Interacting]
     Indication: PRODUCT USED FOR UNKNOWN INDICATION
     Route: 065

REACTIONS (3)
  - Respiratory depression [Unknown]
  - Metabolic encephalopathy [Unknown]
  - Drug interaction [Unknown]
